FAERS Safety Report 10912086 (Version 1)
Quarter: 2015Q1

REPORT INFORMATION
  Report Type: Spontaneous
  Country: US (occurrence: None)
  Receive Date: 20150310
  Receipt Date: 20150310
  Transmission Date: 20150721
  Serious: No
  Sender: FDA-Public Use
  Company Number: None

PATIENT
  Age: 31 Year
  Sex: Female
  Weight: 45.36 kg

DRUGS (2)
  1. LORAZAPAM [Suspect]
     Active Substance: LORAZEPAM
     Indication: ANXIETY
     Dosage: 1/1, AS NEEDED, TAKEN BY MOUTH
     Route: 048
     Dates: start: 20150103, end: 20150309
  2. LORAZAPAM [Suspect]
     Active Substance: LORAZEPAM
     Indication: PANIC ATTACK
     Dosage: 1/1, AS NEEDED, TAKEN BY MOUTH
     Route: 048
     Dates: start: 20150103, end: 20150309

REACTIONS (2)
  - Dysphagia [None]
  - Upper-airway cough syndrome [None]

NARRATIVE: CASE EVENT DATE: 20150309
